FAERS Safety Report 19410525 (Version 1)
Quarter: 2021Q2

REPORT INFORMATION
  Report Type: Spontaneous
  Country: GB (occurrence: GB)
  Receive Date: 20210614
  Receipt Date: 20210614
  Transmission Date: 20210717
  Serious: Yes (Other)
  Sender: FDA-Public Use
  Company Number: GB-TEVA-2021-GB-1921196

PATIENT
  Age: 55 Year
  Sex: Female
  Weight: 69.85 kg

DRUGS (1)
  1. VENLAFAXINE [Suspect]
     Active Substance: VENLAFAXINE HYDROCHLORIDE
     Indication: ANXIETY DISORDER
     Dosage: 75MG
     Route: 048
     Dates: start: 20201203

REACTIONS (2)
  - Vertigo [Recovering/Resolving]
  - Throat irritation [Unknown]

NARRATIVE: CASE EVENT DATE: 20210201
